FAERS Safety Report 8502548-7 (Version None)
Quarter: 2012Q3

REPORT INFORMATION
  Report Type: 
  Country: None (occurrence: None)
  Receive Date: 20120711
  Receipt Date: 20120628
  Transmission Date: 20120928
  Serious: Yes (Death)
  Sender: FDA-Public Use
  Company Number: IT-ELI_LILLY_AND_COMPANY-IT201206009477

PATIENT
  Sex: Female

DRUGS (4)
  1. ZYPREXA [Suspect]
     Indication: PSYCHIATRIC DECOMPENSATION
     Dosage: 25 MG, QD
     Route: 048
     Dates: start: 20120124, end: 20120625
  2. DELORAZEPAM [Concomitant]
  3. ARIPIPRAZOLE [Concomitant]
     Indication: OBSESSIVE-COMPULSIVE PERSONALITY DISORDER
     Dosage: 10 MG, QD
     Route: 048
     Dates: start: 20120430, end: 20120625
  4. ACETAMINOPHEN [Concomitant]
     Dosage: 500 MG, UNK
     Route: 048

REACTIONS (3)
  - PYREXIA [None]
  - SUDDEN DEATH [None]
  - OVERDOSE [None]
